FAERS Safety Report 19664540 (Version 1)
Quarter: 2021Q3

REPORT INFORMATION
  Report Type: Spontaneous
  Country: US (occurrence: US)
  Receive Date: 20210806
  Receipt Date: 20210806
  Transmission Date: 20211014
  Serious: No
  Sender: FDA-Public Use
  Company Number: US-PURDUE PHARMA-USA-2021-0218671

PATIENT
  Sex: Female

DRUGS (2)
  1. BUPRENORPHINE TRANSDERMAL PATCH (SIMILAR TO NDA 21?306) [Suspect]
     Active Substance: BUPRENORPHINE
     Dosage: 7.5 MCG/HR, WEEKLY
     Route: 062
  2. BUPRENORPHINE TRANSDERMAL PATCH (SIMILAR TO NDA 21?306) [Suspect]
     Active Substance: BUPRENORPHINE
     Indication: PAIN IN EXTREMITY
     Dosage: 7.5 MCG/HR, WEEKLY
     Route: 062
     Dates: start: 202004

REACTIONS (5)
  - Skin reaction [Unknown]
  - Application site erythema [Unknown]
  - Application site vesicles [Unknown]
  - Application site pruritus [Unknown]
  - Application site rash [Unknown]

NARRATIVE: CASE EVENT DATE: 202006
